FAERS Safety Report 20818746 (Version 2)
Quarter: 2022Q2

REPORT INFORMATION
  Report Type: Spontaneous
  Country: US (occurrence: US)
  Receive Date: 20220512
  Receipt Date: 20220527
  Transmission Date: 20220720
  Serious: Yes (Hospitalization)
  Sender: FDA-Public Use
  Company Number: US-TEVA-2022-US-2035078

PATIENT
  Age: 85 Year
  Sex: Male

DRUGS (11)
  1. WARFARIN [Interacting]
     Active Substance: WARFARIN
     Indication: Deep vein thrombosis
     Dosage: INITIAL DOSE NOT STATED. HIS WEEKLY WARFARIN DOSE OF 25MG WAS STABLE FOR THE 3 MONTHS PRIOR TO IN...
     Route: 065
  2. MICONAZOLE NITRATE [Interacting]
     Active Substance: MICONAZOLE NITRATE
     Indication: Rash
     Dosage: DAILY APPLICATIION
     Route: 061
  3. MICONAZOLE NITRATE [Interacting]
     Active Substance: MICONAZOLE NITRATE
     Indication: Rash
     Dosage: AFTER 2 WEEKS OF ONCE DAILY APPLICATION, THE FREQUENCY WAS INCREASED TO 3 TIMES DAILY
     Route: 061
  4. HYDROXYZINE [Concomitant]
     Active Substance: HYDROXYZINE HYDROCHLORIDE
     Indication: Product used for unknown indication
     Route: 065
  5. INSULIN LISPRO [Concomitant]
     Active Substance: INSULIN LISPRO
     Indication: Type 2 diabetes mellitus
     Route: 065
  6. INSULIN GLARGINE [Concomitant]
     Active Substance: INSULIN GLARGINE
     Indication: Type 2 diabetes mellitus
     Route: 065
  7. LOVASTATIN [Concomitant]
     Active Substance: LOVASTATIN
     Indication: Product used for unknown indication
     Route: 065
  8. NEOSPORIN [Concomitant]
     Active Substance: BACITRACIN ZINC\NEOMYCIN SULFATE\POLYMYXIN B SULFATE
     Indication: Product used for unknown indication
     Route: 061
  9. LIDOCAINE [Concomitant]
     Active Substance: LIDOCAINE
     Indication: Product used for unknown indication
     Route: 061
  10. VITAMIN D3 [Concomitant]
     Active Substance: CHOLECALCIFEROL
     Indication: Product used for unknown indication
     Route: 065
  11. AMLODIPINE [Concomitant]
     Active Substance: AMLODIPINE BESYLATE
     Indication: Hypertension
     Route: 065

REACTIONS (4)
  - International normalised ratio increased [Recovered/Resolved]
  - Swelling [Unknown]
  - Ecchymosis [Unknown]
  - Drug interaction [Unknown]
